FAERS Safety Report 4589425-1 (Version None)
Quarter: 2005Q1

REPORT INFORMATION
  Report Type: 
  Country: None (occurrence: None)
  Receive Date: 20050223
  Receipt Date: 20050217
  Transmission Date: 20050727
  Serious: Yes (Hospitalization)
  Sender: FDA-Public Use
  Company Number: 200511481GDDC

PATIENT
  Age: 90 Year
  Sex: Male

DRUGS (5)
  1. MINIRIN [Suspect]
     Dosage: DOSE: UNK
     Route: 048
     Dates: start: 20030101, end: 20041107
  2. ESIDRIX [Suspect]
     Indication: HYPERTENSION
     Route: 048
     Dates: start: 20000101, end: 20041107
  3. SIMVASTATIN [Concomitant]
     Dosage: DOSE: UNK
  4. ACETYLSALICYLIC ACID [Concomitant]
     Dosage: DOSE: UNK
  5. ZOPICLONE [Concomitant]
     Dosage: DOSE: UNK

REACTIONS (2)
  - HYPOKALAEMIA [None]
  - HYPONATRAEMIA [None]
